FAERS Safety Report 13278674 (Version 1)
Quarter: 2017Q1

REPORT INFORMATION
  Report Type: Spontaneous
  Country: CN (occurrence: CN)
  Receive Date: 20170228
  Receipt Date: 20170228
  Transmission Date: 20170428
  Serious: Yes (Other)
  Sender: FDA-Public Use
  Company Number: CN-ABBVIE-17P-035-1891998-00

PATIENT
  Age: 70 Year
  Sex: Male

DRUGS (3)
  1. DEPAKINE CHRONO [Suspect]
     Active Substance: VALPROATE SODIUM
     Indication: EPILEPSY
     Route: 048
     Dates: start: 20161031
  2. DEPAKINE CHRONO [Suspect]
     Active Substance: VALPROATE SODIUM
     Dosage: DOSE DECREASED
     Route: 065
     Dates: end: 20161117
  3. CITICOLINE SODIUM [Concomitant]
     Active Substance: CITICOLINE SODIUM
     Indication: PRODUCT USED FOR UNKNOWN INDICATION
     Dates: start: 20161031, end: 20161212

REACTIONS (2)
  - Leukopenia [Recovering/Resolving]
  - Erythropenia [Recovering/Resolving]

NARRATIVE: CASE EVENT DATE: 20161031
